FAERS Safety Report 5502003-2 (Version None)
Quarter: 2007Q4

REPORT INFORMATION
  Report Type: 
  Country: None (occurrence: None)
  Receive Date: 20071030
  Receipt Date: 20071023
  Transmission Date: 20080405
  Serious: Yes (Death)
  Sender: FDA-Public Use
  Company Number: B0491754A

PATIENT
  Age: 79 Year
  Sex: Female
  Weight: 50 kg

DRUGS (10)
  1. REQUIP [Suspect]
     Indication: PARKINSON'S DISEASE
     Dosage: 3MG THREE TIMES PER DAY
     Route: 048
     Dates: start: 20070816, end: 20071008
  2. PRAVASTATIN [Concomitant]
     Dosage: 10MG PER DAY
     Route: 048
     Dates: end: 20071008
  3. SYMMETREL [Concomitant]
     Indication: PARKINSON'S DISEASE
     Dosage: 200MG PER DAY
     Route: 048
     Dates: end: 20071008
  4. ADALAT [Concomitant]
     Indication: HYPERTENSION
     Dosage: 40MG PER DAY
     Route: 048
     Dates: end: 20071008
  5. ALFAROL [Concomitant]
     Indication: OSTEOPOROSIS
     Dosage: .5MCG PER DAY
     Route: 048
     Dates: end: 20071008
  6. MENESIT [Concomitant]
     Indication: PARKINSON'S DISEASE
     Dosage: 300MG PER DAY
     Route: 048
     Dates: start: 20071008
  7. GLYSENNID [Concomitant]
     Indication: CONSTIPATION
     Dosage: 12MG PER DAY
     Route: 048
     Dates: end: 20071008
  8. CRAVIT [Concomitant]
     Indication: CONJUNCTIVITIS
     Route: 031
     Dates: end: 20071008
  9. HYALEIN [Concomitant]
     Indication: CONJUNCTIVITIS
     Route: 031
     Dates: end: 20071008
  10. MS REISHIPPU [Concomitant]
     Indication: BACK PAIN
     Route: 062
     Dates: end: 20071008

REACTIONS (3)
  - DEATH [None]
  - FALL [None]
  - SUDDEN DEATH [None]
